FAERS Safety Report 6769143-1 (Version None)
Quarter: 2010Q2

REPORT INFORMATION
  Report Type: 
  Country: None (occurrence: None)
  Receive Date: 20100603
  Receipt Date: 20100525
  Transmission Date: 20101027
  Serious: Yes (Other)
  Sender: FDA-Public Use
  Company Number: 2010SP030011

PATIENT
  Age: 49 Year
  Sex: Male

DRUGS (4)
  1. MIRTAZAPINE [Suspect]
     Indication: DEPRESSION
     Dosage: 15 MG;QD
     Dates: start: 20100101
  2. ZOLPIDEM (CON.) [Concomitant]
  3. TETRAZEPAM (CON.) [Concomitant]
  4. LYSANXIA (CON.) [Concomitant]

REACTIONS (4)
  - DRUG INEFFECTIVE [None]
  - INTENTIONAL SELF-INJURY [None]
  - NAUSEA [None]
  - SELF-INDUCED VOMITING [None]
